FAERS Safety Report 5769749-2 (Version None)
Quarter: 2008Q2

REPORT INFORMATION
  Report Type: 
  Country: None (occurrence: None)
  Receive Date: 20080612
  Receipt Date: 20080409
  Transmission Date: 20081010
  Serious: No
  Sender: FDA-Public Use
  Company Number: US-ABBOTT-08P-163-0446377-00

PATIENT
  Sex: Male
  Weight: 75.818 kg

DRUGS (3)
  1. HUMIRA [Suspect]
     Indication: PSORIASIS
     Route: 058
     Dates: start: 20060301, end: 20080410
  2. CHONDROITIN W/GLUCOSAMINE [Suspect]
     Indication: MEDICAL DIET
     Dosage: 4 PILLS DAILY
     Route: 048
     Dates: start: 20080301, end: 20080410
  3. NITROGEN DIOXIDE [Suspect]
     Indication: MEDICAL DIET
     Route: 048
     Dates: end: 20080410

REACTIONS (2)
  - RASH [None]
  - VASCULITIS [None]
